FAERS Safety Report 8518701-2 (Version None)
Quarter: 2012Q3

REPORT INFORMATION
  Report Type: 
  Country: None (occurrence: None)
  Receive Date: 20120718
  Receipt Date: 20110614
  Transmission Date: 20120928
  Serious: No
  Sender: FDA-Public Use
  Company Number: US-BRISTOL-MYERS SQUIBB COMPANY-15829914

PATIENT
  Sex: Female

DRUGS (1)
  1. COUMADIN [Suspect]
     Dosage: 5MG FOR 4 DAYS AND 7.5 THE OTHERS DURATION:2 WEEKS
     Dates: start: 20080101

REACTIONS (3)
  - BLOOD VISCOSITY INCREASED [None]
  - NAUSEA [None]
  - MIGRAINE [None]
